FAERS Safety Report 6649324-8 (Version None)
Quarter: 2010Q1

REPORT INFORMATION
  Report Type: 
  Country: None (occurrence: None)
  Receive Date: 20100322
  Receipt Date: 20100305
  Transmission Date: 20100710
  Serious: Yes (Life-Threatening)
  Sender: FDA-Public Use
  Company Number: 1-21561365

PATIENT
  Age: 76 Year
  Sex: Male
  Weight: 67.8581 kg

DRUGS (3)
  1. ROCURONIUM BROMIDE [Suspect]
     Indication: INDUCTION OF ANAESTHESIA
     Dosage: 40 MG, ONCE
     Dates: start: 20100204, end: 20100204
  2. FENTANYL-100 [Suspect]
     Dosage: 250 MCG (TOTAL DOSE)
     Dates: start: 20100204, end: 20100204
  3. LIPITOR [Concomitant]

REACTIONS (3)
  - ASTHENIA [None]
  - DELAYED RECOVERY FROM ANAESTHESIA [None]
  - RESPIRATORY FAILURE [None]
